FAERS Safety Report 9670696 (Version 2)
Quarter: 2014Q2

REPORT INFORMATION
  Report Type: Spontaneous
  Country: DE (occurrence: DE)
  Receive Date: 20131106
  Receipt Date: 20140414
  Transmission Date: 20141212
  Serious: Yes (Other)
  Sender: FDA-Public Use
  Company Number: DE-JNJFOC-20131018669

PATIENT
  Age: 13 Month
  Sex: Female

DRUGS (2)
  1. DIMENHYDRINATE [Suspect]
     Indication: VOMITING
     Dosage: 40MG, 5 SUPPOSITORIES DURING THE PREVIOUS 2 DAYS
     Route: 065
  2. DIMENHYDRINATE [Suspect]
     Indication: ENTERITIS
     Dosage: 40MG, 5 SUPPOSITORIES DURING THE PREVIOUS 2 DAYS
     Route: 065

REACTIONS (2)
  - Generalised tonic-clonic seizure [Recovered/Resolved]
  - Accidental overdose [Unknown]
